FAERS Safety Report 22387252 (Version 2)
Quarter: 2023Q2

REPORT INFORMATION
  Report Type: Spontaneous
  Country: US (occurrence: US)
  Receive Date: 20230531
  Receipt Date: 20230607
  Transmission Date: 20230721
  Serious: Yes (Other)
  Sender: FDA-Public Use
  Company Number: US-Melinta Therapeutics, LLC-US-MLNT-23-00326

PATIENT
  Age: 70 Year
  Sex: Male

DRUGS (2)
  1. ORBACTIV [Suspect]
     Active Substance: ORITAVANCIN
     Indication: Product used for unknown indication
     Dosage: NOT PROVIDED.
     Dates: start: 20230512, end: 20230512
  2. ORBACTIV [Suspect]
     Active Substance: ORITAVANCIN
     Dosage: NOT PROVIDED.
     Route: 041
     Dates: start: 20230523, end: 20230523

REACTIONS (8)
  - Respiratory distress [Recovered/Resolved]
  - Hypertension [Recovered/Resolved]
  - Vomiting [Recovered/Resolved]
  - Chills [Recovered/Resolved]
  - Hypoglycaemia [Recovered/Resolved]
  - Nausea [Recovered/Resolved]
  - Infusion related reaction [Recovered/Resolved]
  - Multiple use of single-use product [Recovered/Resolved]

NARRATIVE: CASE EVENT DATE: 20230523
